FAERS Safety Report 7913444 (Version 6)
Quarter: 2013Q2

REPORT INFORMATION
  Report Type: Spontaneous
  Country: US (occurrence: US)
  Receive Date: 20110425
  Receipt Date: 20130405
  Transmission Date: 20140414
  Serious: Yes (Hospitalization, Other)
  Sender: FDA-Public Use
  Company Number: US-009507513-1104USA02220

PATIENT
  Sex: Female
  Weight: 60.32 kg

DRUGS (2)
  1. FOSAMAX [Suspect]
     Indication: OSTEOPOROSIS
     Dosage: UNK
     Route: 048
     Dates: start: 1998, end: 200910
  2. FOSAMAX D [Suspect]
     Indication: OSTEOPOROSIS
     Dosage: UNK
     Route: 048
     Dates: start: 1998, end: 200910

REACTIONS (13)
  - Internal fixation of fracture [Unknown]
  - Fall [Unknown]
  - Femur fracture [Recovered/Resolved]
  - Internal fixation of fracture [Unknown]
  - Femur fracture [Recovered/Resolved]
  - Tooth infection [Unknown]
  - Tooth disorder [Unknown]
  - Osteoarthritis [Unknown]
  - Tooth extraction [Unknown]
  - Osteopenia [Unknown]
  - Injury [Unknown]
  - Osteomyelitis [Unknown]
  - Bone neoplasm [Unknown]
